FAERS Safety Report 16298336 (Version 1)
Quarter: 2019Q2

REPORT INFORMATION
  Report Type: Spontaneous
  Country: US (occurrence: US)
  Receive Date: 20190510
  Receipt Date: 20190510
  Transmission Date: 20190711
  Serious: Yes (Other)
  Sender: FDA-Public Use
  Company Number: US-APOTEX-2019AP013674

PATIENT
  Age: 72 Year
  Sex: Male

DRUGS (5)
  1. CLOPIDOGREL [Suspect]
     Active Substance: CLOPIDOGREL BISULFATE
     Indication: PRODUCT USED FOR UNKNOWN INDICATION
     Dosage: UNK
     Route: 065
  2. PRASUGREL. [Suspect]
     Active Substance: PRASUGREL
     Indication: PRODUCT USED FOR UNKNOWN INDICATION
     Dosage: 60 MG, Q.12H
     Route: 065
  3. PRASUGREL. [Suspect]
     Active Substance: PRASUGREL
     Dosage: 10 MG, QD
     Route: 065
  4. PRASUGREL. [Suspect]
     Active Substance: PRASUGREL
     Dosage: 20 MG, QD
     Route: 065
  5. PRASUGREL. [Suspect]
     Active Substance: PRASUGREL
     Dosage: 60 MG, UNK
     Route: 065

REACTIONS (3)
  - Drug ineffective [Unknown]
  - Platelet function test abnormal [Unknown]
  - Thrombosis [Unknown]
